FAERS Safety Report 6571295-3 (Version None)
Quarter: 2010Q1

REPORT INFORMATION
  Report Type: 
  Country: None (occurrence: None)
  Receive Date: 20100129
  Receipt Date: 20100119
  Transmission Date: 20100710
  Serious: Yes (Death)
  Sender: FDA-Public Use
  Company Number: PERC20100011

PATIENT
  Age: 32 Year
  Sex: Male

DRUGS (8)
  1. PERCOCET [Suspect]
     Indication: DRUG USE FOR UNKNOWN INDICATION
     Dosage: ORAL
     Route: 048
  2. OXYNORM         (OXYCODONE HYDROCHLORIDE) (AMPOULES) [Suspect]
     Indication: DRUG USE FOR UNKNOWN INDICATION
     Dosage: INTRAVENOUS
     Route: 042
  3. NOZINAN      (LEVOMEPROMAZINE) [Suspect]
     Indication: DRUG USE FOR UNKNOWN INDICATION
  4. ETHANOL        (ETHANOL) [Suspect]
  5. ACETAMINOPHEN [Suspect]
     Indication: DRUG USE FOR UNKNOWN INDICATION
  6. OMEPRAZOLE [Concomitant]
  7. DEXAMETHASONE [Concomitant]
  8. ACETAMINOPHEN [Concomitant]

REACTIONS (5)
  - HYPOTHERMIA [None]
  - LOSS OF CONSCIOUSNESS [None]
  - NARCOTIC INTOXICATION [None]
  - OVERDOSE [None]
  - RESUSCITATION [None]
